FAERS Safety Report 4341979-6 (Version None)
Quarter: 2004Q2

REPORT INFORMATION
  Report Type: 
  Country: None (occurrence: None)
  Receive Date: 20040415
  Receipt Date: 20040329
  Transmission Date: 20050107
  Serious: Yes (Hospitalization, Other)
  Sender: FDA-Public Use
  Company Number: US_0404101949

PATIENT
  Age: 60 Year
  Sex: Male
  Weight: 100 kg

DRUGS (3)
  1. HUMALOG [Suspect]
     Indication: DIABETES MELLITUS
     Dates: start: 20000101
  2. HUMULIN N [Suspect]
     Indication: DIABETES MELLITUS
  3. MORPHINE SULFATE [Concomitant]

REACTIONS (9)
  - BACK PAIN [None]
  - BLINDNESS UNILATERAL [None]
  - BLOOD GLUCOSE INCREASED [None]
  - DEAFNESS [None]
  - EXOSTOSIS [None]
  - GLAUCOMA [None]
  - INTERVERTEBRAL DISC DISORDER [None]
  - NEUROPATHY [None]
  - RETINOPATHY [None]
